FAERS Safety Report 9193244 (Version 1)
Quarter: 2013Q1

REPORT INFORMATION
  Report Type: Spontaneous
  Country: US (occurrence: None)
  Receive Date: 20120703
  Receipt Date: 20120703
  Transmission Date: 20140127
  Serious: No
  Sender: FDA-Public Use
  Company Number: PHEH2012US009751

PATIENT
  Age: 54 Year
  Sex: Female

DRUGS (6)
  1. GILENYA (FTY) CAPSULE, 0.5MG [Suspect]
     Indication: MULTIPLE SCLEROSIS
     Route: 048
     Dates: start: 201101
  2. KLONOPIN (CLONAZEPAM) (TABLETS) [Concomitant]
  3. TRICOR (FENOFIBRATE) [Concomitant]
  4. SEROQUEL (QUETIAPINE FUMARATE) [Concomitant]
  5. NUCYNTA (TAPENTADOL, HYDROCHLORIDE) [Concomitant]
  6. NUVIGIL (ARMODAFINIL) [Concomitant]

REACTIONS (4)
  - Pyelonephritis [None]
  - Dysphagia [None]
  - Cataract [None]
  - Vertigo [None]
